FAERS Safety Report 15979603 (Version 6)
Quarter: 2019Q3

REPORT INFORMATION
  Report Type: Spontaneous
  Country: US (occurrence: US)
  Receive Date: 20190219
  Receipt Date: 20190826
  Transmission Date: 20191004
  Serious: No
  Sender: FDA-Public Use
  Company Number: US-PFIZER INC-2019071915

PATIENT
  Age: 74 Year
  Sex: Female

DRUGS (3)
  1. IBRANCE [Suspect]
     Active Substance: PALBOCICLIB
     Dosage: 125 MG, CYCLIC (ONE CAPSULE EVERY DAY, DAYS 1 TO 21 EVERY 28 DAYS)
     Route: 048
     Dates: start: 20160201
  2. IBRANCE [Suspect]
     Active Substance: PALBOCICLIB
     Indication: BREAST CANCER
     Dosage: 125 MG, CYCLIC (TAKE ONE CAPSULE EVERY DAY, DAYS 1-21 EVERY 28 DAYS)
     Route: 048
     Dates: start: 20160101
  3. IBRANCE [Suspect]
     Active Substance: PALBOCICLIB
     Dosage: 125 MG, ONCE A DAY
     Dates: start: 20190125

REACTIONS (6)
  - Fatigue [Unknown]
  - Asthenia [Unknown]
  - Pain [Unknown]
  - Muscle spasms [Unknown]
  - Fungal skin infection [Unknown]
  - Joint swelling [Unknown]
